FAERS Safety Report 23802219 (Version 6)
Quarter: 2024Q4

REPORT INFORMATION
  Report Type: Report from Study
  Country: JP (occurrence: JP)
  Receive Date: 20240501
  Receipt Date: 20241220
  Transmission Date: 20250115
  Serious: Yes (Hospitalization, Other)
  Sender: UCB
  Company Number: JP-UCBSA-2024019539

PATIENT
  Sex: Female
  Weight: 77 kg

DRUGS (4)
  1. ZILUCOPLAN [Suspect]
     Active Substance: ZILUCOPLAN
     Indication: Myasthenia gravis
     Dosage: 32.4 MILLIGRAM
     Route: 058
     Dates: start: 20240410, end: 20240610
  2. PREDNISOLONE [Concomitant]
     Active Substance: PREDNISOLONE
     Indication: Myasthenia gravis
     Dosage: 10 MILLIGRAM (DAILY)
     Route: 048
  3. MESTINON [Concomitant]
     Active Substance: PYRIDOSTIGMINE BROMIDE
     Indication: Myasthenia gravis
     Dosage: 180 MILLIGRAM (DAILY)
     Route: 048
  4. CYCLOSPORINE [Concomitant]
     Active Substance: CYCLOSPORINE
     Indication: Myasthenia gravis
     Dosage: 200 MILLIGRAM (DAILY)
     Route: 048

REACTIONS (4)
  - Myasthenia gravis [Recovering/Resolving]
  - Injection site pain [Unknown]
  - Genital odour [Unknown]
  - Therapeutic response decreased [Unknown]

NARRATIVE: CASE EVENT DATE: 20240101
